FAERS Safety Report 4835468-X (Version None)
Quarter: 2005Q4

REPORT INFORMATION
  Report Type: 
  Country: None (occurrence: None)
  Receive Date: 20051122
  Receipt Date: 20051122
  Transmission Date: 20060501
  Serious: Yes (Life-Threatening)
  Sender: FDA-Public Use
  Company Number: None

PATIENT
  Sex: Male
  Weight: 188.8 kg

DRUGS (13)
  1. RASBURICASE [Suspect]
     Indication: HYPERURICAEMIA
     Dosage: 15 MG IV X 1 DOSE
     Dates: start: 20051118
  2. RASBURICASE [Suspect]
     Indication: STEM CELL TRANSPLANT
     Dosage: 15 MG IV X 1 DOSE
     Dates: start: 20051118
  3. LEVOFLOXACIN [Concomitant]
  4. FLUCONAZOLE [Concomitant]
  5. VALACYCLOVIR HCL [Concomitant]
  6. PANTOPRAZOLE [Concomitant]
  7. GABAPENTIN [Concomitant]
  8. SERTRALINE HCL [Concomitant]
  9. METOLAZONE [Concomitant]
  10. TAMSULOSIN [Concomitant]
  11. MORPHINE SULFATE [Concomitant]
  12. ODANSETRON [Concomitant]
  13. DEXAMETHASONE [Concomitant]

REACTIONS (5)
  - BLOOD PRESSURE DECREASED [None]
  - FEELING HOT [None]
  - INFUSION RELATED REACTION [None]
  - OXYGEN SATURATION DECREASED [None]
  - SYNCOPE [None]
